FAERS Safety Report 18284478 (Version 2)
Quarter: 2022Q4

REPORT INFORMATION
  Report Type: Spontaneous
  Country: DE (occurrence: DE)
  Receive Date: 20200919
  Receipt Date: 20221019
  Transmission Date: 20230112
  Serious: Yes (Hospitalization)
  Sender: FDA-Public Use
  Company Number: DE-ADRED-05268-01

PATIENT
  Age: 80 Year
  Sex: Male
  Weight: 122.5 kg

DRUGS (10)
  1. TELMISARTAN [Suspect]
     Active Substance: TELMISARTAN
     Indication: Product used for unknown indication
     Dosage: 40 MG, 1-0-0-0, TABLETS
     Route: 048
  2. TORSEMIDE [Suspect]
     Active Substance: TORSEMIDE
     Indication: Product used for unknown indication
     Route: 048
  3. DOXAZOSIN [Suspect]
     Active Substance: DOXAZOSIN MESYLATE
     Indication: Product used for unknown indication
     Dosage: 2 MG, 1-0-1-0, TABLETS
     Route: 048
  4. ASPIRIN [Concomitant]
     Active Substance: ASPIRIN
     Indication: Product used for unknown indication
     Dosage: 100 MG, 0-1-0-0, TABLETS
     Route: 048
  5. CARVEDILOL [Concomitant]
     Active Substance: CARVEDILOL
     Indication: Product used for unknown indication
     Dosage: 25 MG, 1-0-1-0, TABLETS
     Route: 048
  6. MINOXIDIL [Concomitant]
     Active Substance: MINOXIDIL
     Indication: Product used for unknown indication
     Route: 048
  7. FELODIPINE [Concomitant]
     Active Substance: FELODIPINE
     Indication: Product used for unknown indication
     Dosage: 5 MG, 1-0-0-0, TABLETS
     Route: 048
  8. ATORVASTATIN [Concomitant]
     Active Substance: ATORVASTATIN
     Indication: Product used for unknown indication
     Dosage: 20 MG, 0-0-1-0, TABLETS
     Route: 048
  9. DONEPEZIL [Concomitant]
     Active Substance: DONEPEZIL
     Indication: Product used for unknown indication
     Route: 048
  10. CHOLECALCIFEROL [Concomitant]
     Active Substance: CHOLECALCIFEROL
     Indication: Product used for unknown indication
     Dosage: 20.000 IE, MONDAY, CAPSULES
     Route: 048

REACTIONS (8)
  - Scrotal oedema [Unknown]
  - Weight increased [Unknown]
  - Fatigue [Unknown]
  - General physical health deterioration [Unknown]
  - Condition aggravated [Unknown]
  - Face oedema [Unknown]
  - Oliguria [Unknown]
  - Dyspnoea [Unknown]
